FAERS Safety Report 7948515-3 (Version None)
Quarter: 2011Q4

REPORT INFORMATION
  Report Type: 
  Country: None (occurrence: None)
  Receive Date: 20111130
  Receipt Date: 20111125
  Transmission Date: 20120403
  Serious: Yes (Other)
  Sender: FDA-Public Use
  Company Number: GB-ABBOTT-11P-167-0878652-00

PATIENT
  Sex: Male

DRUGS (1)
  1. VALPROIC ACID [Suspect]
     Indication: EPILEPSY
     Dosage: 1 TAB MORNING 2 TABS AT NIGHT
     Route: 048
     Dates: start: 20101201

REACTIONS (2)
  - CONVULSION [None]
  - MEDICATION RESIDUE [None]
